FAERS Safety Report 5632366-9 (Version None)
Quarter: 2008Q1

REPORT INFORMATION
  Report Type: 
  Country: None (occurrence: None)
  Receive Date: 20080131
  Receipt Date: 20070928
  Transmission Date: 20080703
  Serious: No
  Sender: FDA-Public Use
  Company Number: 163-21880-07100320(0)

PATIENT
  Age: 60 Year
  Sex: Female
  Weight: 43.7721 kg

DRUGS (2)
  1. REVLIMID [Suspect]
     Indication: MULTIPLE MYELOMA
     Dosage: 15 MG, 1 IN 1 D, ORAL : 15 MG, 1 IN 1 D, ORAL
     Route: 048
     Dates: start: 20070508, end: 20070801
  2. REVLIMID [Suspect]
     Indication: MULTIPLE MYELOMA
     Dosage: 15 MG, 1 IN 1 D, ORAL : 15 MG, 1 IN 1 D, ORAL
     Route: 048
     Dates: start: 20071005

REACTIONS (5)
  - ARTHRALGIA [None]
  - HAEMORRHAGE [None]
  - NAUSEA [None]
  - PLATELET COUNT DECREASED [None]
  - VOMITING [None]
